FAERS Safety Report 9929329 (Version 1)
Quarter: 2014Q1

REPORT INFORMATION
  Report Type: Spontaneous
  Country: GB (occurrence: GB)
  Receive Date: 20140227
  Receipt Date: 20140227
  Transmission Date: 20141002
  Serious: Yes (Other)
  Sender: FDA-Public Use
  Company Number: GB-TEVA-463260ISR

PATIENT
  Age: 71 Year
  Sex: Female

DRUGS (3)
  1. OXCARBAZEPINE [Suspect]
     Dosage: 750 MILLIGRAM DAILY; 300MG IN THE MORNING, 150MG MIDDAY,  300MG AT NIGHT.
     Route: 048
  2. ZONISAMIDE [Concomitant]
     Dosage: 400 MILLIGRAM DAILY;
     Route: 048
  3. PREGABALIN [Concomitant]
     Dosage: 250 MILLIGRAM DAILY; 150MG IN THE MORNING AND 100MG AT NIGHT.
     Route: 048

REACTIONS (4)
  - Neuropathy peripheral [Unknown]
  - Alopecia [Unknown]
  - Headache [Unknown]
  - Paraesthesia [Unknown]
